FAERS Safety Report 16643210 (Version 2)
Quarter: 2019Q3

REPORT INFORMATION
  Report Type: Spontaneous
  Country: US (occurrence: US)
  Receive Date: 20190729
  Receipt Date: 20190923
  Transmission Date: 20191004
  Serious: Yes (Other)
  Sender: FDA-Public Use
  Company Number: US-ELI_LILLY_AND_COMPANY-US201907009360

PATIENT
  Sex: Female
  Weight: 72.11 kg

DRUGS (1)
  1. TALTZ [Suspect]
     Active Substance: IXEKIZUMAB
     Indication: PRODUCT USED FOR UNKNOWN INDICATION
     Dosage: 80 MG, OTHER (2 INJECTIONS ONCE ALLOWED BY INJECTION IN 04 WEEKS)
     Route: 065
     Dates: start: 20180731, end: 20181120

REACTIONS (2)
  - Therapy non-responder [Unknown]
  - Lymphoma [Unknown]
